FAERS Safety Report 18053902 (Version 2)
Quarter: 2020Q3

REPORT INFORMATION
  Report Type: Spontaneous
  Country: IT (occurrence: IT)
  Receive Date: 20200722
  Receipt Date: 20200806
  Transmission Date: 20201103
  Serious: Yes (Other)
  Sender: FDA-Public Use
  Company Number: IT-BAYER-2020-143230

PATIENT
  Age: 22 Year
  Sex: Female

DRUGS (1)
  1. JAYDESS [Suspect]
     Active Substance: LEVONORGESTREL
     Indication: CONTRACEPTION
     Dosage: 14 ?G PER DAY, CONTINUOUSLY
     Route: 015
     Dates: start: 20180302

REACTIONS (9)
  - Ectopic pregnancy with contraceptive device [None]
  - Syncope [None]
  - Abdominal pain [None]
  - Haemorrhage in pregnancy [None]
  - Drug ineffective [None]
  - Malaise [None]
  - Abdominal pain [None]
  - Haemorrhage in pregnancy [None]
  - Syncope [None]

NARRATIVE: CASE EVENT DATE: 202001
